FAERS Safety Report 15405632 (Version 1)
Quarter: 2018Q3

REPORT INFORMATION
  Report Type: Report from Study
  Country: TR (occurrence: TR)
  Receive Date: 20180920
  Receipt Date: 20180920
  Transmission Date: 20181010
  Serious: Yes (Hospitalization, Other)
  Sender: FDA-Public Use
  Company Number: TR-ACCORD-071733

PATIENT
  Age: 79 Year
  Sex: Female

DRUGS (8)
  1. PREDNISONE. [Concomitant]
     Active Substance: PREDNISONE
  2. RAMIPRIL. [Concomitant]
     Active Substance: RAMIPRIL
  3. RISEDRONATE SODIUM/RISEDRONIC ACID [Concomitant]
  4. METHOTREXATE. [Suspect]
     Active Substance: METHOTREXATE
     Indication: PRODUCT USED FOR UNKNOWN INDICATION
  5. HYDROXYCHLOROQUINE [Concomitant]
     Active Substance: HYDROXYCHLOROQUINE
  6. CARVEDILOL/CARVEDILOL HYDROCHLODRIDE [Concomitant]
  7. INSULIN [Concomitant]
     Active Substance: INSULIN NOS
  8. ACETYLSALICYLIC ACID [Concomitant]
     Active Substance: ASPIRIN

REACTIONS (4)
  - Mucosal inflammation [Recovered/Resolved]
  - Pneumonitis [Recovered/Resolved]
  - Pancytopenia [Recovered/Resolved]
  - Pyrexia [Recovered/Resolved]
